FAERS Safety Report 20973065 (Version 12)
Quarter: 2024Q2

REPORT INFORMATION
  Report Type: Report from Study
  Country: US (occurrence: US)
  Receive Date: 20220617
  Receipt Date: 20240516
  Transmission Date: 20240716
  Serious: Yes (Other)
  Sender: FDA-Public Use
  Company Number: US-ABBVIE-22K-163-4400459-00

PATIENT
  Age: 72 Year
  Sex: Male
  Weight: 81 kg

DRUGS (8)
  1. HUMIRA [Suspect]
     Active Substance: ADALIMUMAB
     Indication: Crohn^s disease
     Dosage: CITRATE FREE, FORM STRENGTH: 40 MILLIGRAM
     Route: 058
     Dates: start: 20100104, end: 20220516
  2. HUMIRA [Suspect]
     Active Substance: ADALIMUMAB
     Dosage: CITRATE FREE, FORM STRENGTH: 40 MILLIGRAM
     Route: 058
  3. HUMIRA [Suspect]
     Active Substance: ADALIMUMAB
     Dosage: CITRATE FREE, FORM STRENGTH: 40 MILLIGRAM
     Route: 058
  4. HUMIRA [Suspect]
     Active Substance: ADALIMUMAB
     Dosage: CITRATE FREE, FORM STRENGTH: 40 MILLIGRAM
     Route: 058
     Dates: start: 20220615
  5. MODERNA COVID-19 VACCINE [Concomitant]
     Active Substance: ELASOMERAN
     Indication: COVID-19 immunisation
     Dosage: TIME INTERVAL: 1 TOTAL: 1ST DOSE.
     Route: 030
     Dates: start: 202101, end: 202101
  6. MODERNA COVID-19 VACCINE [Concomitant]
     Active Substance: ELASOMERAN
     Indication: COVID-19 immunisation
     Dosage: TIME INTERVAL: 1 TOTAL: 2ND DOSE.
     Route: 030
     Dates: start: 202102, end: 202102
  7. MODERNA COVID-19 VACCINE [Concomitant]
     Active Substance: ELASOMERAN
     Indication: COVID-19 immunisation
     Dosage: TIME INTERVAL: 1 TOTAL: BOOSTER DOSE.
     Route: 030
     Dates: start: 202108, end: 202108
  8. LEVETIRACETAM [Concomitant]
     Active Substance: LEVETIRACETAM
     Indication: Seizure

REACTIONS (20)
  - Osteoarthritis [Recovering/Resolving]
  - Stress [Unknown]
  - Crohn^s disease [Recovered/Resolved]
  - Type 2 diabetes mellitus [Recovering/Resolving]
  - Rheumatoid arthritis [Recovering/Resolving]
  - Chondropathy [Not Recovered/Not Resolved]
  - Fatigue [Recovered/Resolved]
  - Blood glucose increased [Recovering/Resolving]
  - Eczema [Recovering/Resolving]
  - Crohn^s disease [Recovered/Resolved]
  - Crohn^s disease [Recovering/Resolving]
  - Ligament sprain [Recovered/Resolved]
  - Arthritis [Not Recovered/Not Resolved]
  - Pollakiuria [Recovering/Resolving]
  - Arthralgia [Recovered/Resolved]
  - Post procedural pruritus [Unknown]
  - Post procedural inflammation [Unknown]
  - Anaemia [Recovering/Resolving]
  - Hypertension [Recovering/Resolving]
  - Arthralgia [Recovering/Resolving]

NARRATIVE: CASE EVENT DATE: 20140101
